FAERS Safety Report 4787479-0 (Version None)
Quarter: 2005Q4

REPORT INFORMATION
  Report Type: 
  Country: None (occurrence: None)
  Receive Date: 20051004
  Receipt Date: 20050601
  Transmission Date: 20060501
  Serious: Yes (Death)
  Sender: FDA-Public Use
  Company Number: ES-SANOFI-SYNTHELABO-F01200500864

PATIENT
  Sex: Male

DRUGS (2)
  1. OXALIPLATIN [Suspect]
     Indication: COLORECTAL CANCER
     Route: 042
     Dates: start: 20040804, end: 20040804
  2. FLUOROURACIL [Suspect]
     Dosage: 3000 MG/M2 IN 48 HOURS INFUSION, Q2W
     Route: 042
     Dates: start: 20040804, end: 20040804

REACTIONS (5)
  - ANAEMIA [None]
  - ASTHENIA [None]
  - HAEMATURIA [None]
  - PNEUMONIA [None]
  - RENAL FAILURE ACUTE [None]
